FAERS Safety Report 8017691-9 (Version None)
Quarter: 2011Q4

REPORT INFORMATION
  Report Type: 
  Country: None (occurrence: None)
  Receive Date: 20111229
  Receipt Date: 20111229
  Transmission Date: 20120403
  Serious: No
  Sender: FDA-Public Use
  Company Number: None

PATIENT
  Sex: Male
  Weight: 99.1 kg

DRUGS (2)
  1. LANSPRAZOLE [Suspect]
     Indication: GASTROOESOPHAGEAL REFLUX DISEASE
     Dosage: NEXIUM 40MG ONCE A DAY
     Dates: start: 20110104
  2. LANSPRAZOLE [Suspect]
     Indication: BARRETT'S OESOPHAGUS
     Dosage: NEXIUM 40MG ONCE A DAY
     Dates: start: 20110104

REACTIONS (1)
  - DIARRHOEA [None]
